FAERS Safety Report 9296716 (Version 3)
Quarter: 2013Q2

REPORT INFORMATION
  Report Type: Spontaneous
  Country: US (occurrence: None)
  Receive Date: 20130515
  Receipt Date: 20130621
  Transmission Date: 20140414
  Serious: Yes (Hospitalization, Other)
  Sender: FDA-Public Use
  Company Number: 2013P1005525

PATIENT
  Age: 55 Year
  Sex: Male
  Weight: 71.22 kg

DRUGS (12)
  1. RILUTEK [Suspect]
     Indication: AMYOTROPHIC LATERAL SCLEROSIS
     Route: 048
     Dates: start: 20130306, end: 201303
  2. ATIVAN [Suspect]
     Dates: start: 20130308
  3. VALIUM [Suspect]
     Dates: start: 20130308
  4. HYDRALAZINE [Concomitant]
  5. METOPROLOL TARTRATE [Concomitant]
  6. IRON [Concomitant]
  7. PEPCID [Concomitant]
  8. DARBEPOETIN [Concomitant]
  9. MEGESTROL [Concomitant]
  10. QUETIAPINE [Concomitant]
  11. ALBUTEROL [Concomitant]
  12. IPRATROPIUM [Concomitant]

REACTIONS (23)
  - Hypertension [None]
  - Blood pressure decreased [None]
  - Dehydration [None]
  - Lung disorder [None]
  - Respiratory depression [None]
  - Renal function test abnormal [None]
  - Liver function test abnormal [None]
  - Atelectasis [None]
  - Bronchial secretion retention [None]
  - Gastric dilatation [None]
  - Anaemia [None]
  - Pneumonia [None]
  - Hypokalaemia [None]
  - Alkalosis [None]
  - Alanine aminotransferase increased [None]
  - Chronic hepatitis [None]
  - Sedation [None]
  - Carbon dioxide increased [None]
  - Drug hypersensitivity [None]
  - Blood urea increased [None]
  - Aspartate aminotransferase increased [None]
  - Tachycardia [None]
  - Depression [None]
